FAERS Safety Report 8847253 (Version 2)
Quarter: 2012Q4

REPORT INFORMATION
  Report Type: 
  Country: JP (occurrence: JP)
  Receive Date: 20121018
  Receipt Date: 20121207
  Transmission Date: 20130627
  Serious: Yes (Hospitalization, Other)
  Sender: FDA-Public Use
  Company Number: PHHY2012JP092602

PATIENT
  Age: 83 Year
  Sex: Female

DRUGS (9)
  1. DICLOFENAC POTASSIUM [Suspect]
     Indication: BACK PAIN
     Route: 054
  2. OLMESARTAN MEDOXOMIL [Concomitant]
  3. MAGNESIUM OXIDE [Concomitant]
  4. PRAVASTATIN [Concomitant]
  5. AMLODIPINE [Concomitant]
  6. LANSOPRAZOLE [Concomitant]
  7. TIOTROPIUM BROMIDE [Concomitant]
  8. BETAMETHASONE [Concomitant]
  9. DEXCHLORPHENIRAMINE [Concomitant]

REACTIONS (11)
  - Intestinal ischaemia [Unknown]
  - Abdominal pain [Recovered/Resolved]
  - Abdominal pain upper [Recovered/Resolved]
  - Anaphylactic reaction [Recovered/Resolved]
  - Urticaria [Unknown]
  - Dyspnoea [Unknown]
  - Hypotension [Unknown]
  - Oxygen saturation decreased [Unknown]
  - Mental disorder [Unknown]
  - Fear of eating [Unknown]
  - Malnutrition [Unknown]
